FAERS Safety Report 5631117-1 (Version None)
Quarter: 2008Q1

REPORT INFORMATION
  Report Type: 
  Country: None (occurrence: None)
  Receive Date: 20080213
  Receipt Date: 20080204
  Transmission Date: 20080703
  Serious: Yes (Death)
  Sender: FDA-Public Use
  Company Number: 2008-01005

PATIENT
  Age: 24 Year
  Sex: Male

DRUGS (4)
  1. DIPHENHYDRAMINE HCL [Suspect]
  2. TRICYCLIC ANTIDEPRESSANTS() [Suspect]
  3. PAROXETINE [Suspect]
  4. CEPHALEXIN [Suspect]

REACTIONS (1)
  - DEATH [None]
